FAERS Safety Report 5010240-9 (Version None)
Quarter: 2006Q2

REPORT INFORMATION
  Report Type: 
  Country: None (occurrence: None)
  Receive Date: 20060524
  Receipt Date: 20060514
  Transmission Date: 20061013
  Serious: Yes (Hospitalization)
  Sender: FDA-Public Use
  Company Number: IL-MERCK-0605ISR00010

PATIENT
  Age: 66 Year
  Sex: Male

DRUGS (1)
  1. INVANZ [Suspect]
     Indication: KLEBSIELLA INFECTION
     Route: 042
     Dates: start: 20060506, end: 20060508

REACTIONS (1)
  - STATUS EPILEPTICUS [None]
